FAERS Safety Report 7875054-0 (Version None)
Quarter: 2011Q4

REPORT INFORMATION
  Report Type: 
  Country: None (occurrence: None)
  Receive Date: 20111031
  Receipt Date: 20111021
  Transmission Date: 20120403
  Serious: Yes (Hospitalization)
  Sender: FDA-Public Use
  Company Number: US-BRISTOL-MYERS SQUIBB COMPANY-16188724

PATIENT
  Age: 57 Year
  Sex: Male

DRUGS (9)
  1. TRUVADA [Concomitant]
     Dosage: 1DF:1UNIITS NOS
  2. LISINOPRIL [Concomitant]
  3. REYATAZ [Suspect]
  4. LASIX [Concomitant]
  5. NORVIR [Concomitant]
  6. HEPARIN [Concomitant]
  7. SIMVASTATIN [Concomitant]
  8. METHADONE HCL [Concomitant]
  9. METHYLPREDNISOLONE [Concomitant]

REACTIONS (3)
  - RESPIRATORY FAILURE [None]
  - PULMONARY OEDEMA [None]
  - CARDIAC FAILURE CONGESTIVE [None]
